FAERS Safety Report 7347238-1 (Version None)
Quarter: 2011Q1

REPORT INFORMATION
  Report Type: 
  Country: None (occurrence: None)
  Receive Date: 20110311
  Receipt Date: 20110309
  Transmission Date: 20110831
  Serious: Yes (Hospitalization)
  Sender: FDA-Public Use
  Company Number: CA-ABBOTT-11P-028-0710604-00

PATIENT
  Age: 41 Year
  Sex: Male

DRUGS (10)
  1. VINBLASTINE SULFATE [Interacting]
     Indication: PRODUCT USED FOR UNKNOWN INDICATION
  2. DACARBAZINE FOR INJECTION BP [Concomitant]
     Indication: PRODUCT USED FOR UNKNOWN INDICATION
     Route: 042
  3. KALETRA [Suspect]
     Indication: PRODUCT USED FOR UNKNOWN INDICATION
  4. OXYCODONE AND ACETAMINOPHEN [Concomitant]
     Indication: PRODUCT USED FOR UNKNOWN INDICATION
  5. VIREAD [Interacting]
     Indication: PRODUCT USED FOR UNKNOWN INDICATION
  6. GRANULOCYTE COLONY STIMULATING FACTOR [Concomitant]
     Indication: PRODUCT USED FOR UNKNOWN INDICATION
  7. EMTRIVA [Interacting]
     Indication: PRODUCT USED FOR UNKNOWN INDICATION
  8. BLEOMYCIN SULFATE [Concomitant]
     Indication: PRODUCT USED FOR UNKNOWN INDICATION
  9. DOXORUBICIN HCL [Concomitant]
     Indication: PRODUCT USED FOR UNKNOWN INDICATION
  10. TRIMETHOPRIM [Concomitant]
     Indication: PRODUCT USED FOR UNKNOWN INDICATION

REACTIONS (8)
  - LARGE INTESTINE PERFORATION [None]
  - CONSTIPATION [None]
  - ABDOMINAL DISTENSION [None]
  - AUTONOMIC NEUROPATHY [None]
  - ILEUS [None]
  - LYMPHADENOPATHY [None]
  - POTENTIATING DRUG INTERACTION [None]
  - MEGACOLON [None]
